FAERS Safety Report 5789017-2 (Version None)
Quarter: 2008Q2

REPORT INFORMATION
  Report Type: 
  Country: None (occurrence: None)
  Receive Date: 20080626
  Receipt Date: 20080620
  Transmission Date: 20081010
  Serious: Yes (Hospitalization)
  Sender: FDA-Public Use
  Company Number: A0729956A

PATIENT
  Age: 49 Year
  Sex: Male

DRUGS (3)
  1. DEXAMPHETAMINE SULPHATE [Suspect]
     Indication: ATTENTION DEFICIT/HYPERACTIVITY DISORDER
     Dosage: 120MG TWICE PER DAY
     Route: 048
     Dates: start: 19990101
  2. DEXEDRINE [Suspect]
     Indication: ATTENTION DEFICIT/HYPERACTIVITY DISORDER
     Dosage: 120MG TWICE PER DAY
     Route: 048
     Dates: start: 19950501
  3. LISINOPRIL [Concomitant]

REACTIONS (17)
  - APHASIA [None]
  - ARRHYTHMIA [None]
  - BALANCE DISORDER [None]
  - BRAIN INJURY [None]
  - CLOSTRIDIAL INFECTION [None]
  - DEHYDRATION [None]
  - DISORIENTATION [None]
  - DISTURBANCE IN ATTENTION [None]
  - DYSPEPSIA [None]
  - GALLBLADDER DISORDER [None]
  - GASTROINTESTINAL DISORDER [None]
  - HORMONE LEVEL ABNORMAL [None]
  - ILL-DEFINED DISORDER [None]
  - INSOMNIA [None]
  - PANCREATITIS [None]
  - PHARMACEUTICAL PRODUCT COMPLAINT [None]
  - VOMITING PROJECTILE [None]
